FAERS Safety Report 6982804-4 (Version None)
Quarter: 2010Q3

REPORT INFORMATION
  Report Type: 
  Country: None (occurrence: None)
  Receive Date: 20100914
  Receipt Date: 20100413
  Transmission Date: 20110219
  Serious: No
  Sender: FDA-Public Use
  Company Number: US-PFIZER INC-2010047977

PATIENT
  Sex: Male

DRUGS (2)
  1. LYRICA [Suspect]
     Dosage: UNK MG,
     Route: 048
  2. ZOLOFT [Concomitant]
     Dosage: UNK
     Route: 048

REACTIONS (1)
  - WEIGHT FLUCTUATION [None]
